FAERS Safety Report 9546874 (Version 3)
Quarter: 2013Q4

REPORT INFORMATION
  Report Type: Spontaneous
  Country: US (occurrence: US)
  Receive Date: 20130924
  Receipt Date: 20131118
  Transmission Date: 20140711
  Serious: Yes (Hospitalization)
  Sender: FDA-Public Use
  Company Number: US-BAXTER-2013BAX036642

PATIENT
  Age: 27 Year
  Sex: Female

DRUGS (5)
  1. DIANEAL LOW CALCIUM [Suspect]
     Indication: PERITONEAL DIALYSIS
     Route: 033
     Dates: start: 20120227
  2. DIANEAL LOW CALCIUM [Suspect]
     Route: 033
     Dates: start: 20120227
  3. DIANEAL LOW CALCIUM [Suspect]
     Indication: PERITONEAL DIALYSIS
     Route: 033
     Dates: start: 201202
  4. DIANEAL LOW CALCIUM [Suspect]
     Route: 033
     Dates: start: 201202
  5. DIANEAL LOW CALCIUM (ULTRABAG) [Suspect]
     Indication: PERITONEAL DIALYSIS
     Route: 033
     Dates: start: 201202

REACTIONS (4)
  - Disseminated tuberculosis [Recovering/Resolving]
  - Nerve injury [Recovering/Resolving]
  - Anaemia [Recovering/Resolving]
  - Mobility decreased [Recovering/Resolving]
